FAERS Safety Report 8558405-3 (Version None)
Quarter: 2012Q3

REPORT INFORMATION
  Report Type: 
  Country: None (occurrence: None)
  Receive Date: 20120801
  Receipt Date: 19970331
  Transmission Date: 20120928
  Serious: No
  Sender: FDA-Public Use
  Company Number: US-009507513-97040026

PATIENT

DRUGS (7)
  1. SYNTHROID [Concomitant]
  2. RELAFEN [Concomitant]
  3. FOSAMAX [Suspect]
     Indication: OSTEOPOROSIS
     Dosage: 10 MG, QD
     Route: 048
     Dates: start: 19960901, end: 19970331
  4. PREMARIN [Concomitant]
  5. MK-9039 [Concomitant]
  6. INDERAL [Concomitant]
  7. COUMADIN [Concomitant]

REACTIONS (2)
  - MOUTH ULCERATION [None]
  - TONGUE ULCERATION [None]
